FAERS Safety Report 6592839-1 (Version None)
Quarter: 2010Q1

REPORT INFORMATION
  Report Type: 
  Country: None (occurrence: None)
  Receive Date: 20100212
  Receipt Date: 20100201
  Transmission Date: 20100710
  Serious: Yes (Death)
  Sender: FDA-Public Use
  Company Number: TPA2009A03869

PATIENT
  Age: 81 Year
  Sex: Female
  Weight: 36.2878 kg

DRUGS (6)
  1. PREVPAC [Suspect]
     Indication: GASTRIC ULCER
     Dosage: 2 IN 1 D, PER ORAL
     Route: 048
     Dates: start: 20091022, end: 20091023
  2. PREVPAC [Suspect]
     Indication: HELICOBACTER INFECTION
     Dosage: 2 IN 1 D, PER ORAL
     Route: 048
     Dates: start: 20091022, end: 20091023
  3. NORVASC [Concomitant]
  4. ELAVIL [Concomitant]
  5. ZOCOR [Concomitant]
  6. COLACE (DOCUSATE SODIUM) [Concomitant]

REACTIONS (1)
  - RESPIRATORY DISTRESS [None]
